FAERS Safety Report 5793491-5 (Version None)
Quarter: 2008Q2

REPORT INFORMATION
  Report Type: 
  Country: None (occurrence: None)
  Receive Date: 20080627
  Receipt Date: 20080617
  Transmission Date: 20081010
  Serious: Yes (Death, Life-Threatening, Hospitalization)
  Sender: FDA-Public Use
  Company Number: BE-AMGEN-UK284131

PATIENT
  Sex: Male
  Weight: 66 kg

DRUGS (1)
  1. KEPIVANCE [Suspect]
     Indication: MUCOSAL INFLAMMATION
     Route: 042
     Dates: start: 20080514, end: 20080525

REACTIONS (4)
  - BRONCHOPULMONARY ASPERGILLOSIS [None]
  - EPIDERMOLYSIS [None]
  - FLUID OVERLOAD [None]
  - SHOCK [None]
